FAERS Safety Report 24132411 (Version 1)
Quarter: 2024Q3

REPORT INFORMATION
  Report Type: Spontaneous
  Country: US (occurrence: US)
  Receive Date: 20240724
  Receipt Date: 20240724
  Transmission Date: 20241016
  Serious: Yes (Other)
  Sender: JOHNSON AND JOHNSON
  Company Number: US-JNJFOC-20240752479

PATIENT
  Age: 75 Year
  Sex: Female

DRUGS (2)
  1. TALVEY [Suspect]
     Active Substance: TALQUETAMAB-TGVS
     Indication: Product used for unknown indication
     Route: 065
  2. TALVEY [Suspect]
     Active Substance: TALQUETAMAB-TGVS
     Route: 065

REACTIONS (1)
  - Blood pressure decreased [Not Recovered/Not Resolved]

NARRATIVE: CASE EVENT DATE: 20240718
